FAERS Safety Report 6148696-0 (Version None)
Quarter: 2009Q2

REPORT INFORMATION
  Report Type: 
  Country: None (occurrence: None)
  Receive Date: 20090406
  Receipt Date: 20090406
  Transmission Date: 20091009
  Serious: No
  Sender: FDA-Public Use
  Company Number: None

PATIENT
  Age: 68 Year
  Sex: Male

DRUGS (1)
  1. IOHEXAL GENERAL ELECTRIC [Suspect]
     Dosage: IV
     Route: 042
     Dates: start: 20090402, end: 20090402

REACTIONS (3)
  - PRURITUS [None]
  - SKIN TIGHTNESS [None]
  - URTICARIA [None]
